FAERS Safety Report 5141273-X (Version None)
Quarter: 2006Q4

REPORT INFORMATION
  Report Type: 
  Country: None (occurrence: None)
  Receive Date: 20061101
  Receipt Date: 20061018
  Transmission Date: 20070319
  Serious: Yes (Hospitalization)
  Sender: FDA-Public Use
  Company Number: PHBS2006JP16370

PATIENT
  Age: 43 Year
  Sex: Female

DRUGS (5)
  1. MEILAX [Suspect]
     Indication: MAJOR DEPRESSION
     Route: 048
     Dates: start: 20030101, end: 20041001
  2. DOGMATYL [Concomitant]
     Indication: MAJOR DEPRESSION
     Route: 048
     Dates: end: 20041001
  3. TOLEDOMIN [Concomitant]
     Indication: MAJOR DEPRESSION
     Route: 048
     Dates: end: 20040901
  4. FAMOTIDINE [Concomitant]
     Indication: GASTRIC ULCER
  5. LUDIOMIL [Suspect]
     Indication: MAJOR DEPRESSION
     Dosage: UNK, UNK
     Route: 048
     Dates: start: 20040901, end: 20041001

REACTIONS (10)
  - BIOPSY SKIN [None]
  - CONJUNCTIVAL HYPERAEMIA [None]
  - DRUG ERUPTION [None]
  - ERYTHEMA [None]
  - ERYTHEMA MULTIFORME [None]
  - FACE OEDEMA [None]
  - LYMPHOCYTE STIMULATION TEST POSITIVE [None]
  - PHARYNGOLARYNGEAL DISCOMFORT [None]
  - PYREXIA [None]
  - SKIN TEST POSITIVE [None]
